FAERS Safety Report 19041554 (Version 1)
Quarter: 2021Q1

REPORT INFORMATION
  Report Type: Spontaneous
  Country: US (occurrence: US)
  Receive Date: 20210322
  Receipt Date: 20210322
  Transmission Date: 20210420
  Serious: Yes (Other)
  Sender: FDA-Public Use
  Company Number: US-FRESENIUS KABI-FK202102710

PATIENT
  Age: 60 Year
  Sex: Male

DRUGS (4)
  1. FENTANYL (MANUFACTURER UNKNOWN) [Suspect]
     Active Substance: FENTANYL
     Indication: SEDATION
     Dosage: 300 MCG/H
     Route: 065
  2. PROPOFOL (MANUFACTURER UNKNOWN) [Suspect]
     Active Substance: PROPOFOL
     Indication: SEDATION
     Dosage: UNK
     Route: 065
  3. DEXMEDETOMIDINE (MANUFACTURER UNKNOWN) [Suspect]
     Active Substance: DEXMEDETOMIDINE
     Indication: SEDATION
     Dosage: UNK
     Route: 065
  4. LORAZEPAM. [Suspect]
     Active Substance: LORAZEPAM
     Indication: SEDATIVE THERAPY
     Dosage: AS NEEDED
     Route: 065

REACTIONS (1)
  - Withdrawal syndrome [Recovered/Resolved]
